FAERS Safety Report 21137415 (Version 4)
Quarter: 2023Q2

REPORT INFORMATION
  Report Type: Spontaneous
  Country: US (occurrence: US)
  Receive Date: 20220727
  Receipt Date: 20230426
  Transmission Date: 20230722
  Serious: No
  Sender: FDA-Public Use
  Company Number: US-JNJFOC-20220738174

PATIENT
  Age: 63 Year
  Sex: Male
  Weight: 80.812 kg

DRUGS (1)
  1. TREMFYA [Suspect]
     Active Substance: GUSELKUMAB
     Indication: Psoriasis
     Route: 058
     Dates: start: 20211221

REACTIONS (5)
  - Product dose omission issue [Unknown]
  - Accidental exposure to product [Unknown]
  - Needle issue [Unknown]
  - Device issue [Unknown]
  - Illness [Unknown]

NARRATIVE: CASE EVENT DATE: 20220719
